FAERS Safety Report 4448756-6 (Version None)
Quarter: 2004Q3

REPORT INFORMATION
  Report Type: 
  Country: None (occurrence: None)
  Receive Date: 20040909
  Receipt Date: 20040909
  Transmission Date: 20050211
  Serious: Yes (Hospitalization)
  Sender: FDA-Public Use
  Company Number: None

PATIENT
  Age: 50 Year
  Sex: Female
  Weight: 69 kg

DRUGS (3)
  1. BACTRIM [Suspect]
     Indication: PERTUSSIS
     Dosage: 800/160MG  TWICE DAIL  ORAL
     Route: 048
     Dates: start: 20040722, end: 20040803
  2. BACTRIM [Suspect]
     Indication: PROPHYLAXIS
     Dosage: 800/160MG  TWICE DAIL  ORAL
     Route: 048
     Dates: start: 20040722, end: 20040803
  3. ALBUTEROL [Concomitant]

REACTIONS (8)
  - ALANINE AMINOTRANSFERASE INCREASED [None]
  - ASPARTATE AMINOTRANSFERASE INCREASED [None]
  - BONE MARROW TOXICITY [None]
  - HAEMOGLOBIN DECREASED [None]
  - LYMPHOCYTE COUNT DECREASED [None]
  - NEUTROPHIL COUNT DECREASED [None]
  - PAROTITIS [None]
  - WHITE BLOOD CELL COUNT DECREASED [None]
